FAERS Safety Report 8156265-6 (Version None)
Quarter: 2012Q1

REPORT INFORMATION
  Report Type: 
  Country: None (occurrence: None)
  Receive Date: 20120103
  Receipt Date: 20110929
  Transmission Date: 20120608
  Serious: No
  Sender: FDA-Public Use
  Company Number: AE-2011-000776

PATIENT
  Age: 55 Year
  Sex: Male

DRUGS (3)
  1. INCIVEK [Suspect]
     Dosage: ORAL
     Route: 048
     Dates: start: 20110805
  2. RIBAVIRIN [Concomitant]
  3. PEGASYS [Concomitant]

REACTIONS (14)
  - HEADACHE [None]
  - ALPHA 1 FOETOPROTEIN INCREASED [None]
  - MYALGIA [None]
  - CHILLS [None]
  - ASTHENIA [None]
  - PROCTALGIA [None]
  - MALAISE [None]
  - POLYP COLORECTAL [None]
  - DIVERTICULUM INTESTINAL [None]
  - BALANCE DISORDER [None]
  - FATIGUE [None]
  - SOMNOLENCE [None]
  - HYPERSOMNIA [None]
  - HAEMORRHOIDAL HAEMORRHAGE [None]
